FAERS Safety Report 11448606 (Version 3)
Quarter: 2015Q4

REPORT INFORMATION
  Report Type: Spontaneous
  Country: US (occurrence: US)
  Receive Date: 20150902
  Receipt Date: 20151028
  Transmission Date: 20160304
  Serious: Yes (Other)
  Sender: FDA-Public Use
  Company Number: US-AMGEN-USASP2015088288

PATIENT
  Age: 87 Year
  Sex: Female
  Weight: 70.3 kg

DRUGS (7)
  1. ARANESP [Suspect]
     Active Substance: DARBEPOETIN ALFA
     Indication: ANAEMIA
     Dosage: UNK
     Route: 042
     Dates: start: 2004
  2. PROCRIT [Suspect]
     Active Substance: ERYTHROPOIETIN
     Dosage: 60000 UNIT, QWK
     Route: 058
     Dates: start: 201505
  3. CRESTOR [Concomitant]
     Active Substance: ROSUVASTATIN CALCIUM
     Indication: BLOOD CHOLESTEROL INCREASED
     Dosage: 5 MG, EVERY OTHER DAY
  4. PROCRIT [Suspect]
     Active Substance: ERYTHROPOIETIN
     Dosage: 40000 UNIT, QWK
     Route: 058
     Dates: start: 201501, end: 201505
  5. DIOVAN [Concomitant]
     Active Substance: VALSARTAN
     Indication: TRANSIENT ISCHAEMIC ATTACK
     Dosage: 80 MG, DAILY
  6. VERAPAMIL [Concomitant]
     Active Substance: VERAPAMIL HYDROCHLORIDE
     Indication: TRANSIENT ISCHAEMIC ATTACK
     Dosage: 120 MG, ONCE DAILY
  7. PROCRIT [Suspect]
     Active Substance: ERYTHROPOIETIN
     Indication: ANAEMIA
     Dosage: 40000 UNIT, AS NEEDED
     Route: 058
     Dates: start: 2008, end: 2015

REACTIONS (5)
  - Vision blurred [Not Recovered/Not Resolved]
  - Blood count abnormal [Not Recovered/Not Resolved]
  - Blood uric acid increased [Not Recovered/Not Resolved]
  - Myelodysplastic syndrome [Recovered/Resolved]
  - Drug dose omission [Unknown]

NARRATIVE: CASE EVENT DATE: 2009
